FAERS Safety Report 9546977 (Version 2)
Quarter: 2013Q3

REPORT INFORMATION
  Report Type: Spontaneous
  Country: US (occurrence: None)
  Receive Date: 20130606
  Receipt Date: 20130908
  Transmission Date: 20140515
  Serious: No
  Sender: FDA-Public Use
  Company Number: 163-POMAL-13050303

PATIENT
  Age: 66 Year
  Sex: Female

DRUGS (12)
  1. POMALYST [Suspect]
     Indication: PLASMA CELL MYELOMA
     Dosage: 4 MG, 1 IN 1D, PO
     Route: 048
     Dates: start: 20130404
  2. LYRICA (PREGAALIN) [Concomitant]
  3. NORTRIPTYLINE HCL (NORTRIPTLINE HYDROCHLORIDE) [Concomitant]
  4. MELOXICAM (MELOXICAM) [Concomitant]
  5. LIPITOR (ATORVASTATIN) [Concomitant]
  6. ALPRAZOLAM (ALPRAZOLAM) [Concomitant]
  7. CLONIDINE HCL (CLONIDINE HYDROCHLORIDE) [Concomitant]
  8. MECLIZINE (MECLOZINE) [Concomitant]
  9. PROAIR HFA (SALBUTAMOL SULFATE) [Concomitant]
  10. PRISTIQ (DESVENLAFAXINSUCCINATE) [Concomitant]
  11. ZOLPIDEM TARTRATE [Concomitant]
  12. DEXAMETHASONE (DEXAMETHASONE) [Concomitant]

REACTIONS (2)
  - Gingivitis [None]
  - Tooth abscess [None]
